FAERS Safety Report 11067885 (Version 1)
Quarter: 2015Q2

REPORT INFORMATION
  Report Type: Spontaneous
  Country: US (occurrence: None)
  Receive Date: 20150424
  Receipt Date: 20150424
  Transmission Date: 20150821
  Serious: No
  Sender: FDA-Public Use
  Company Number: None

PATIENT
  Age: 48 Year
  Sex: Female
  Weight: 109.1 kg

DRUGS (1)
  1. PENICILLIN [Suspect]
     Active Substance: PENICILLIN
     Indication: ORAL SURGERY
     Route: 048
     Dates: start: 20150415, end: 20150416

REACTIONS (2)
  - Urticaria [None]
  - Pruritus [None]

NARRATIVE: CASE EVENT DATE: 20150416
